FAERS Safety Report 13241977 (Version 5)
Quarter: 2017Q2

REPORT INFORMATION
  Report Type: Report from Study
  Country: US (occurrence: US)
  Receive Date: 20170217
  Receipt Date: 20170615
  Transmission Date: 20170830
  Serious: Yes (Life-Threatening, Hospitalization, Other)
  Sender: FDA-Public Use
  Company Number: US-CELGENEUS-USA-2017023945

PATIENT
  Age: 54 Year
  Sex: Male
  Weight: 80.81 kg

DRUGS (5)
  1. CC-10004 [Suspect]
     Active Substance: APREMILAST
     Route: 048
     Dates: end: 20170210
  2. FLUOCINONIDE. [Concomitant]
     Active Substance: FLUOCINONIDE
     Indication: PSORIASIS
     Dosage: 2 GRAM
     Route: 061
     Dates: start: 20170124
  3. CICLOPIROX. [Concomitant]
     Active Substance: CICLOPIROX
     Indication: ONYCHOMYCOSIS
     Dosage: 2 DROPS
     Route: 061
     Dates: start: 20170124
  4. FLUOCINONIDE. [Concomitant]
     Active Substance: FLUOCINONIDE
     Indication: RASH
  5. CC-10004 [Suspect]
     Active Substance: APREMILAST
     Indication: ANKYLOSING SPONDYLITIS
     Route: 048
     Dates: start: 20130812, end: 20170209

REACTIONS (3)
  - Facial paralysis [Recovered/Resolved]
  - Suicide attempt [Recovered/Resolved]
  - Muscular weakness [Recovered/Resolved]

NARRATIVE: CASE EVENT DATE: 20170210
